FAERS Safety Report 14958018 (Version 1)
Quarter: 2018Q2

REPORT INFORMATION
  Report Type: Spontaneous
  Country: US (occurrence: US)
  Receive Date: 20180531
  Receipt Date: 20180531
  Transmission Date: 20180711
  Serious: No
  Sender: FDA-Public Use
  Company Number: US-ENDO PHARMACEUTICALS INC-2017-005102

PATIENT
  Age: 13 Year
  Sex: Male

DRUGS (1)
  1. SUPPRELIN LA [Suspect]
     Active Substance: HISTRELIN ACETATE
     Indication: EPIPHYSES PREMATURE FUSION
     Dosage: 50 MG, IMPLANT TO BE INSERTED BY PHYSICIAN AS DIRECTED
     Route: 065

REACTIONS (2)
  - Off label use [Unknown]
  - Blood testosterone increased [Unknown]

NARRATIVE: CASE EVENT DATE: 20160426
